FAERS Safety Report 16806786 (Version 1)
Quarter: 2019Q3

REPORT INFORMATION
  Report Type: Spontaneous
  Country: US (occurrence: US)
  Receive Date: 20190913
  Receipt Date: 20190913
  Transmission Date: 20191005
  Serious: Yes (Hospitalization)
  Sender: FDA-Public Use
  Company Number: US-FRESENIUS KABI-FK201910060

PATIENT
  Age: 72 Year
  Sex: Male

DRUGS (1)
  1. IFOSFAMIDE (MANUFACTURER UNKNOWN) [Suspect]
     Active Substance: IFOSFAMIDE
     Indication: CHONDROSARCOMA METASTATIC
     Route: 065

REACTIONS (3)
  - Agitation [Not Recovered/Not Resolved]
  - Clumsiness [Not Recovered/Not Resolved]
  - Haemorrhage [Not Recovered/Not Resolved]
